FAERS Safety Report 5671051-4 (Version None)
Quarter: 2008Q1

REPORT INFORMATION
  Report Type: 
  Country: None (occurrence: None)
  Receive Date: 20080317
  Receipt Date: 20080317
  Transmission Date: 20080703
  Serious: Yes (Death, Life-Threatening, Hospitalization)
  Sender: FDA-Public Use
  Company Number: None

PATIENT
  Age: 79 Year
  Sex: Female
  Weight: 74.8435 kg

DRUGS (1)
  1. CIPROFLOXACIN [Suspect]
     Indication: URINARY TRACT INFECTION
     Dosage: 500MG 2 TABS TWICE DAILY PO
     Route: 048
     Dates: start: 20071212, end: 20071213

REACTIONS (5)
  - HEPATIC NEOPLASM MALIGNANT [None]
  - MEDICATION ERROR [None]
  - OEDEMA [None]
  - OVERDOSE [None]
  - RENAL FAILURE ACUTE [None]
